FAERS Safety Report 8320722-X (Version None)
Quarter: 2012Q2

REPORT INFORMATION
  Report Type: 
  Country: None (occurrence: None)
  Receive Date: 20120430
  Receipt Date: 20120112
  Transmission Date: 20120825
  Serious: Yes (Hospitalization)
  Sender: FDA-Public Use
  Company Number: IT-JNJFOC-20120412446

PATIENT
  Sex: Male
  Weight: 50.1 kg

DRUGS (4)
  1. ANTIBIOTICS [Concomitant]
     Indication: CROHN'S DISEASE
  2. PROTON PUMP INHIBITORS [Concomitant]
  3. REMICADE [Suspect]
     Indication: CROHN'S DISEASE
     Route: 042
     Dates: start: 20110214
  4. PREDNISONE [Concomitant]

REACTIONS (1)
  - COLONIC STENOSIS [None]
